FAERS Safety Report 17611235 (Version 2)
Quarter: 2020Q3

REPORT INFORMATION
  Report Type: Spontaneous
  Country: US (occurrence: US)
  Receive Date: 20200401
  Receipt Date: 20200511
  Transmission Date: 20201104
  Serious: Yes (Hospitalization, Congenital Anomaly, Other)
  Sender: FDA-Public Use
  Company Number: US-ASTRAZENECA-2020SE36694

PATIENT
  Age: 17 Month
  Sex: Male
  Weight: .6 kg

DRUGS (19)
  1. ACETAMINOPHEN. [Suspect]
     Active Substance: ACETAMINOPHEN
     Dosage: 128MG*4ML, PRN, G?TUBE Q4H
     Route: 048
  2. RILEY BUTT CREAM (CALAMINE\ZINC OXIDE) [Suspect]
     Active Substance: CALAMINE\ZINC OXIDE
     Dosage: USE AS DIRECTED, PRN, TOPICAL, UNSCHEDULED, APPLY TOPICALLY AS NEEDED WITH DIAPER CHANGES
     Route: 061
  3. SIMETHICONE (DIMETHICONE) [Suspect]
     Active Substance: DIMETHICONE
     Dosage: 40MG/0.6ML, 20MG=0.3ML, G?TUBE, 4 TIMES DAILY, AS NEEDED
     Route: 048
  4. MISC SUPPLEMENT (VITAMINS NOS/MINERALS NOS) [Suspect]
     Active Substance: MINERALS\VITAMINS
     Route: 065
  5. FERROUS SULFATE. [Suspect]
     Active Substance: FERROUS SULFATE
     Dosage: 15 MG ELEMENTAL IRON / LIQUID 22.5MG*1.5ML, G?TUBE, BID
     Route: 048
  6. LOPERAMIDE [Suspect]
     Active Substance: LOPERAMIDE
     Dosage: 1MG/7.5ML, 05333MG= 4ML PRN, G?TUBE, BID
     Route: 048
  7. SYNAGIS [Suspect]
     Active Substance: PALIVIZUMAB
     Indication: ANTIVIRAL PROPHYLAXIS
     Route: 030
     Dates: start: 20191017
  8. FLUTICASONE HFA [Suspect]
     Active Substance: FLUTICASONE
     Dosage: 110MCG/INH 2 PUFF, IHALATION, BID
     Route: 065
  9. SYNAGIS [Suspect]
     Active Substance: PALIVIZUMAB
     Indication: ANTIVIRAL PROPHYLAXIS
     Route: 030
     Dates: start: 20191001
  10. SYNAGIS [Suspect]
     Active Substance: PALIVIZUMAB
     Indication: BRONCHOPULMONARY DYSPLASIA
     Route: 030
     Dates: start: 20191017
  11. ALBUTEROL. [Suspect]
     Active Substance: ALBUTEROL
     Dosage: 2.5 MG/3ML (0.083%) INHALANTION SOLUTION PRN 2.5ML*3ML, PRN, NED INHAL BID
     Route: 065
  12. STERILE WATER FOR INJECTION [Suspect]
     Active Substance: WATER
     Indication: MECHANICAL VENTILATION
     Dosage: INJECTABLE SOLUTION 2?3 ML
     Route: 065
  13. SYNAGIS [Suspect]
     Active Substance: PALIVIZUMAB
     Indication: PREMATURE BABY
     Route: 030
     Dates: start: 20191001
  14. OMEPRAZOLE. [Suspect]
     Active Substance: OMEPRAZOLE
     Dosage: 2MG/ML SUSPENSION 10MG*5ML, G?TUBE, DAILY
     Route: 048
  15. SULFAMETHOXAZOLE?TRIMETHOPRIM [Suspect]
     Active Substance: SULFAMETHOXAZOLE\TRIMETHOPRIM
     Dosage: 200MG?40NG/5ML, 6 ML, G?TUBE, BID
     Route: 048
  16. SYNAGIS [Suspect]
     Active Substance: PALIVIZUMAB
     Indication: BRONCHOPULMONARY DYSPLASIA
     Route: 030
     Dates: start: 20191001
  17. SYNAGIS [Suspect]
     Active Substance: PALIVIZUMAB
     Indication: PREMATURE BABY
     Route: 030
     Dates: start: 20191017
  18. CAPTORIL [Suspect]
     Active Substance: CAPTOPRIL
     Dosage: 5 MG TID, 5MG (1ML) Q 8HRS
     Route: 048
  19. SODIUM CHLORIDE. [Suspect]
     Active Substance: SODIUM CHLORIDE
     Dosage: 0.9 % INHALATION SOLUTION, EVERY 4 HOURS PRN / 3% INHALATION SOLUTION 0.12 G/M=4 ML, EVERY 4 HOUR...
     Route: 065

REACTIONS (10)
  - Dehydration [Recovering/Resolving]
  - Tachycardia [Recovering/Resolving]
  - Hypernatraemia [Recovering/Resolving]
  - Electrolyte imbalance [Recovered/Resolved]
  - Sepsis [Unknown]
  - Intestinal mass [Unknown]
  - Fatigue [Recovering/Resolving]
  - Chronic respiratory failure [Unknown]
  - Otitis media [Unknown]
  - Diarrhoea [Recovered/Resolved]

NARRATIVE: CASE EVENT DATE: 202003
